FAERS Safety Report 14122006 (Version 1)
Quarter: 2017Q4

REPORT INFORMATION
  Report Type: Spontaneous
  Country: US (occurrence: US)
  Receive Date: 20171024
  Receipt Date: 20171024
  Transmission Date: 20180321
  Serious: No
  Sender: FDA-Public Use
  Company Number: US-SA-2016SA201042

PATIENT
  Age: 65 Year
  Sex: Female
  Weight: 61.68 kg

DRUGS (7)
  1. HYDROXYCHLOROQUINE [Concomitant]
     Active Substance: HYDROXYCHLOROQUINE
     Indication: RHEUMATOID ARTHRITIS
     Route: 065
     Dates: start: 2007
  2. FOLIC ACID. [Concomitant]
     Active Substance: FOLIC ACID
     Indication: RHEUMATOID ARTHRITIS
     Route: 065
     Dates: start: 2007
  3. VITAMIN D3 [Concomitant]
     Active Substance: CHOLECALCIFEROL
     Indication: RHEUMATOID ARTHRITIS
     Route: 065
     Dates: start: 2011
  4. ASPIRINE [Concomitant]
     Active Substance: ASPIRIN
     Indication: RHEUMATOID ARTHRITIS
     Route: 065
     Dates: start: 2007
  5. ONE-A-DAY [Concomitant]
     Active Substance: VITAMINS
     Route: 065
     Dates: start: 1990
  6. ARAVA [Suspect]
     Active Substance: LEFLUNOMIDE
     Indication: ARTHRITIS
     Route: 065
     Dates: start: 20070508, end: 200706
  7. ARAVA [Suspect]
     Active Substance: LEFLUNOMIDE
     Indication: PRURITUS
     Route: 065
     Dates: start: 20070508, end: 200706

REACTIONS (4)
  - Drug hypersensitivity [Unknown]
  - Sluggishness [Recovered/Resolved]
  - Asthenia [Recovered/Resolved]
  - Fatigue [Recovered/Resolved]
